FAERS Safety Report 4684571-6 (Version None)
Quarter: 2005Q2

REPORT INFORMATION
  Report Type: 
  Country: None (occurrence: None)
  Receive Date: 20050531
  Receipt Date: 20050311
  Transmission Date: 20051028
  Serious: Yes (Hospitalization)
  Sender: FDA-Public Use
  Company Number: USA050393019

PATIENT
  Sex: Female

DRUGS (1)
  1. ZYPREXA [Suspect]

REACTIONS (2)
  - DRUG WITHDRAWAL SYNDROME [None]
  - HEADACHE [None]
